FAERS Safety Report 6948811-2 (Version None)
Quarter: 2010Q3

REPORT INFORMATION
  Report Type: 
  Country: None (occurrence: None)
  Receive Date: 20100828
  Receipt Date: 20091118
  Transmission Date: 20110219
  Serious: No
  Sender: FDA-Public Use
  Company Number: US-ABBOTT-09P-163-0609545-00

PATIENT
  Sex: Male
  Weight: 84.444 kg

DRUGS (5)
  1. NIASPAN [Suspect]
     Indication: LOW DENSITY LIPOPROTEIN INCREASED
     Dosage: NIGHTLY
  2. NIASPAN [Suspect]
     Dates: start: 20091001, end: 20091101
  3. NIASPAN [Suspect]
     Dosage: NIGHTLY
     Dates: start: 20091101
  4. TRILIPIX [Concomitant]
     Indication: PRODUCT USED FOR UNKNOWN INDICATION
     Route: 048
  5. OTC NIACIN [Concomitant]
     Indication: LOW DENSITY LIPOPROTEIN INCREASED

REACTIONS (4)
  - DYSPHAGIA [None]
  - FEELING HOT [None]
  - HEADACHE [None]
  - PRURITUS [None]
